FAERS Safety Report 9012382 (Version 2)
Quarter: 2013Q1

REPORT INFORMATION
  Report Type: Spontaneous
  Country: US (occurrence: US)
  Receive Date: 20130114
  Receipt Date: 20130128
  Transmission Date: 20140127
  Serious: No
  Sender: FDA-Public Use
  Company Number: US-009507513-1301USA005067

PATIENT
  Age: 66 Year
  Sex: Female

DRUGS (1)
  1. ASMANEX TWISTHALER [Suspect]
     Indication: ASTHMA
     Dosage: 2 DF, QD
     Route: 055
     Dates: start: 2011

REACTIONS (3)
  - Product quality issue [Unknown]
  - Dizziness [Recovered/Resolved]
  - Breath odour [Recovered/Resolved]
